FAERS Safety Report 20873450 (Version 1)
Quarter: 2022Q2

REPORT INFORMATION
  Report Type: Spontaneous
  Country: US (occurrence: None)
  Receive Date: 20220524
  Receipt Date: 20220524
  Transmission Date: 20220721
  Serious: Yes (Hospitalization)
  Sender: FDA-Public Use
  Company Number: None

PATIENT
  Age: 58 Year
  Sex: Female

DRUGS (26)
  1. OPSUMIT [Suspect]
     Active Substance: MACITENTAN
     Indication: Pulmonary arterial hypertension
     Dosage: 10MG QD ORAL?
     Route: 048
     Dates: start: 20170301
  2. SILDENAFIL [Concomitant]
     Active Substance: SILDENAFIL
  3. BENZONATATE [Concomitant]
     Active Substance: BENZONATATE
  4. MONTELKAST [Concomitant]
  5. MONTELUKAST [Concomitant]
     Active Substance: MONTELUKAST SODIUM
  6. DIGOXIN [Concomitant]
     Active Substance: DIGOXIN
  7. ATOVAQUONE [Concomitant]
     Active Substance: ATOVAQUONE
  8. GABAPENTIN [Concomitant]
     Active Substance: GABAPENTIN
  9. ASPIRIN [Concomitant]
     Active Substance: ASPIRIN
  10. LASIX [Concomitant]
     Active Substance: FUROSEMIDE
  11. LINEZOLID [Concomitant]
     Active Substance: LINEZOLID
  12. ADVAIR HFA [Concomitant]
     Active Substance: FLUTICASONE PROPIONATE\SALMETEROL XINAFOATE
  13. CALCIUM CARBONATE [Concomitant]
     Active Substance: CALCIUM CARBONATE
  14. SPIRIVA RESPIMAT [Concomitant]
     Active Substance: TIOTROPIUM BROMIDE
  15. ACYCLOVIR [Concomitant]
     Active Substance: ACYCLOVIR
  16. LIDOCAINE PATCH [Concomitant]
     Active Substance: LIDOCAINE
  17. COLACE [Concomitant]
     Active Substance: DOCUSATE SODIUM
  18. SENNA LAXATIVE [Concomitant]
     Active Substance: SENNOSIDES
  19. VITAMIN D3 [Concomitant]
     Active Substance: CHOLECALCIFEROL
  20. ATORVASTATIN [Concomitant]
     Active Substance: ATORVASTATIN
  21. FLONASE [Concomitant]
     Active Substance: FLUTICASONE PROPIONATE
  22. MELATONIN [Concomitant]
     Active Substance: MELATONIN
  23. VITAMINS [Concomitant]
     Active Substance: VITAMINS
  24. TYLENOL [Concomitant]
     Active Substance: ACETAMINOPHEN
  25. MIRALAX [Concomitant]
     Active Substance: POLYETHYLENE GLYCOL 3350
  26. ZYRTEC [Concomitant]
     Active Substance: CETIRIZINE HYDROCHLORIDE

REACTIONS (4)
  - Acute respiratory failure [None]
  - Pyrexia [None]
  - Septic shock [None]
  - Pneumonitis [None]

NARRATIVE: CASE EVENT DATE: 20220429
